FAERS Safety Report 8824082 (Version 5)
Quarter: 2014Q2

REPORT INFORMATION
  Report Type: Report from Study
  Country: JP (occurrence: JP)
  Receive Date: 20121003
  Receipt Date: 20140422
  Transmission Date: 20141212
  Serious: Yes (Death, Hospitalization)
  Sender: FDA-Public Use
  Company Number: JP-009507513-1209JPN009637

PATIENT
  Age: 65 Year
  Sex: Female

DRUGS (119)
  1. ZOLINZA CAPSULES 100MG [Suspect]
     Indication: MYCOSIS FUNGOIDES
     Dosage: 300 MG, QD
     Route: 048
     Dates: start: 20120717, end: 20120719
  2. ZOLINZA CAPSULES 100MG [Suspect]
     Dosage: 200 MG, QD
     Route: 048
     Dates: start: 20120723, end: 20120727
  3. ZOLINZA CAPSULES 100MG [Suspect]
     Dosage: 200 MG, QD
     Route: 048
     Dates: start: 20120731, end: 20120731
  4. DENOSINE [Suspect]
     Dosage: DAILY DOSAGE UNKNOWN
     Route: 041
     Dates: start: 20120703, end: 20120704
  5. DENOSINE [Suspect]
     Dosage: DAILY DOSAGE UNKNOWN
     Route: 041
     Dates: start: 20120719, end: 20120719
  6. DENOSINE [Suspect]
     Dosage: DAILY DOSAGE UNKNOWN
     Route: 041
     Dates: start: 20120705, end: 20120713
  7. DENOSINE [Suspect]
     Dosage: DAILY DOSAGE UNKNOWN
     Route: 041
     Dates: start: 20120715, end: 20120715
  8. DENOSINE [Suspect]
     Dosage: DAILY DOSAGE UNKNOWN
     Route: 041
     Dates: start: 20120717, end: 20120717
  9. DENOSINE [Suspect]
     Dosage: DAILY DOSAGE UNKNOWN
     Route: 041
     Dates: start: 20120725, end: 20120725
  10. DENOSINE [Suspect]
     Dosage: DAILY DOSAGE UNKNOWN
     Route: 041
     Dates: start: 20120730, end: 20120730
  11. DENOSINE [Suspect]
     Dosage: DAILY DOSAGE UNKNOWN
     Route: 041
     Dates: start: 20120801, end: 20120801
  12. DENOSINE [Suspect]
     Dosage: DAILY DOSAGE UNKNOWN
     Route: 041
     Dates: start: 20120803, end: 20120803
  13. DENOSINE [Suspect]
     Dosage: DAILY DOSAGE UNKNOWN
     Route: 041
     Dates: start: 20120805, end: 20120805
  14. DENOSINE [Suspect]
     Dosage: DAILY DOSAGE UNKNOWN
     Route: 041
     Dates: start: 20120807, end: 20120807
  15. DENOSINE [Suspect]
     Dosage: DAILY DOSAGE UNKNOWN
     Route: 041
     Dates: start: 20120809, end: 20120809
  16. DENOSINE [Suspect]
     Dosage: DAILY DOSAGE UNKNOWN
     Route: 041
     Dates: start: 20120727, end: 20120727
  17. PREDNISOLONE [Concomitant]
     Indication: MYCOSIS FUNGOIDES
     Dosage: 20 MG, QD
     Route: 048
     Dates: end: 20120730
  18. PREDNISOLONE [Concomitant]
     Dosage: DAILY DOSAGE UNKNOWN
     Route: 048
     Dates: start: 20120711
  19. PREDNISOLONE [Concomitant]
     Dosage: 10 MG, QD
     Route: 048
     Dates: start: 20120724, end: 20120724
  20. PREDNISOLONE [Concomitant]
     Dosage: 5 MG, QD
     Route: 048
     Dates: start: 20120725, end: 20120730
  21. BFLUID [Concomitant]
     Dosage: DAILY DOSAGE UNKNOWN
     Route: 041
     Dates: start: 20120701, end: 20120706
  22. SOLDACTONE [Concomitant]
     Dosage: DAILY DOSAGE UNKNOWN
     Route: 042
     Dates: start: 20120701, end: 20120706
  23. SOLDACTONE [Concomitant]
     Dosage: DAILY DOSAGE UNKNOWN
     Route: 041
     Dates: start: 20120707, end: 20120808
  24. ISOTONIC SODIUM CHLORIDE SOLUTION PL FUSO [Concomitant]
     Dosage: DAILY DOSAGE UNKNOWN
     Route: 041
     Dates: start: 20120701, end: 20120708
  25. ISOTONIC SODIUM CHLORIDE SOLUTION PL FUSO [Concomitant]
     Dosage: DAILY DOSAGE UNKNOWN
     Route: 042
     Dates: start: 20120716, end: 20120716
  26. ISOTONIC SODIUM CHLORIDE SOLUTION PL FUSO [Concomitant]
     Dosage: 60 ML, DIVIDED DOSE FREQUENCY UNKNOWN
     Route: 042
     Dates: start: 20120717, end: 20120719
  27. ISOTONIC SODIUM CHLORIDE SOLUTION PL FUSO [Concomitant]
     Dosage: 40 ML,DIVIDED DOSE FREQUENCY UNKNOWN
     Route: 042
     Dates: start: 20120721, end: 20120722
  28. ISOTONIC SODIUM CHLORIDE SOLUTION PL FUSO [Concomitant]
     Dosage: 40 ML,DIVIDED DOSE FREQUENCY UNKNOWN
     Route: 042
     Dates: start: 20120724, end: 20120728
  29. ISOTONIC SODIUM CHLORIDE SOLUTION PL FUSO [Concomitant]
     Dosage: 80 ML,DIVIDED DOSE FREQUENCY UNKNOWN
     Route: 042
     Dates: start: 20120726, end: 20120726
  30. ISOTONIC SODIUM CHLORIDE SOLUTION PL FUSO [Concomitant]
     Dosage: 60ML,DIVIDED DOSE FREQUENCY UNKNOWN
     Route: 042
     Dates: start: 20120727, end: 20120728
  31. ISOTONIC SODIUM CHLORIDE SOLUTION PL FUSO [Concomitant]
     Dosage: 120 ML,DIVIDED DOSE FREQUENCY UNKNOWN
     Route: 042
     Dates: start: 20120730, end: 20120730
  32. ISOTONIC SODIUM CHLORIDE SOLUTION PL FUSO [Concomitant]
     Dosage: 40 ML
     Route: 042
     Dates: start: 20120731, end: 20120731
  33. ISOTONIC SODIUM CHLORIDE SOLUTION PL FUSO [Concomitant]
     Dosage: 100 ML,DIVIDED DOSE FREQUENCY UNKNOWN
     Route: 041
     Dates: start: 20120720, end: 20120726
  34. ISOTONIC SODIUM CHLORIDE SOLUTION PL FUSO [Concomitant]
     Dosage: 200 ML,DIVIDED DOSE FREQUENCY UNKNOWN
     Route: 041
     Dates: start: 20120727, end: 20120730
  35. ISOTONIC SODIUM CHLORIDE SOLUTION PL FUSO [Concomitant]
     Dosage: 100 ML,DIVIDED DOSE FREQUENCY UNKNOWN
     Route: 041
     Dates: start: 20120731, end: 20120731
  36. NEOPHAGEN INJECTION [Concomitant]
     Dosage: DAILY DOSAGE UNKNOWN
     Route: 042
     Dates: start: 20120701, end: 20120706
  37. FINIBAX [Concomitant]
     Dosage: DAILY DOSAGE UNKNOWN
     Route: 041
     Dates: start: 20120701, end: 20120708
  38. TEICOPLANIN [Concomitant]
     Dosage: DAILY DOSAGE UNKNOWN
     Route: 041
     Dates: start: 20120701, end: 20120708
  39. SOLU-CORTEF [Concomitant]
     Indication: PROPHYLAXIS
     Dosage: DAILY DOSAGE UNKNOWN
     Route: 041
     Dates: start: 20120706, end: 20120706
  40. SOLU-CORTEF [Concomitant]
     Dosage: DAILY DOSAGE UNKNOWN
     Route: 041
     Dates: start: 20120710, end: 20120710
  41. SOLU-CORTEF [Concomitant]
     Dosage: DAILY DOSAGE UNKNOWN
     Route: 041
     Dates: start: 20120712, end: 20120712
  42. SOLU-CORTEF [Concomitant]
     Dosage: DAILY DOSE UNKNOWN
     Route: 041
     Dates: start: 20120714, end: 20120719
  43. SOLU-CORTEF [Concomitant]
     Dosage: 2 DF, THE DIVIDED DOSE FREQUENCY IS UNKNOWN
     Route: 041
     Dates: start: 20120720, end: 20120720
  44. SOLU-CORTEF [Concomitant]
     Dosage: 1 DF, THE DIVIDED DOSE FREQUENCY IS UNKNOWN
     Route: 041
     Dates: start: 20120721, end: 20120721
  45. SOLU-CORTEF [Concomitant]
     Dosage: 1 DF, THE DIVIDED DOSE FREQUENCY IS UNKNOWN
     Route: 041
     Dates: start: 20120723, end: 20120723
  46. SOLU-CORTEF [Concomitant]
     Dosage: 1 DF, THE DIVIDED DOSE FREQUENCY IS UNKNOWN
     Route: 041
     Dates: start: 20120726, end: 20120726
  47. SOLU-CORTEF [Concomitant]
     Dosage: 1 DF, THE DIVIDED DOSE FREQUENCY IS UNKNOWN
     Route: 041
     Dates: start: 20120728, end: 20120728
  48. PRIMPERAN [Concomitant]
     Dosage: DAILY DOSAGE UNKNOWN
     Route: 041
     Dates: start: 20120707, end: 20120707
  49. HEPAFLUSH [Concomitant]
     Dosage: DAILY DOSE UNKNOWN
     Route: 041
     Dates: start: 20120701, end: 20120715
  50. HEPAFLUSH [Concomitant]
     Dosage: DAILY DOSE UNKNOWN
     Route: 042
     Dates: start: 20120706, end: 20120706
  51. HEPAFLUSH [Concomitant]
     Dosage: 15 ML, THE DIVIDED DOSE FREQUENCY IS UNKNOWN
     Route: 042
     Dates: start: 20120710, end: 20120721
  52. HEPAFLUSH [Concomitant]
     Dosage: DAILY DOSE UNKNOWN
     Route: 042
     Dates: start: 20120716, end: 20120716
  53. HEPAFLUSH [Concomitant]
     Dosage: 10 ML,DEVIDED DOSE FREQUENCY UNKNOWN
     Route: 041
     Dates: start: 20120717, end: 20120718
  54. HEPAFLUSH [Concomitant]
     Dosage: 10 ML
     Route: 041
     Dates: start: 20120722, end: 20120722
  55. HEPAFLUSH [Concomitant]
     Dosage: 5 ML,DEVIDED DOSE FREQUENCY UNKNOWN
     Route: 041
     Dates: start: 20120723, end: 20120723
  56. HEPAFLUSH [Concomitant]
     Dosage: 10 ML,DEVIDED DOSE FREQUENCY UNKNOWN
     Route: 041
     Dates: start: 20120724, end: 20120725
  57. HEPAFLUSH [Concomitant]
     Dosage: 5 ML,DEVIDED DOSE FREQUENCY UNKNOWN
     Route: 041
     Dates: start: 20120726, end: 20120729
  58. HEPAFLUSH [Concomitant]
     Dosage: 10 ML,DEVIDED DOSE FREQUENCY UNKNOWN
     Route: 041
     Dates: start: 20120730, end: 20120730
  59. ASPARA K [Concomitant]
     Dosage: DAILY DOSAGE UNKNOWN
     Route: 041
     Dates: start: 20120703, end: 20120706
  60. ASPARA K [Concomitant]
     Dosage: DAILY DOSAGE UNKNOWN
     Route: 041
     Dates: start: 20120710, end: 20120809
  61. WATER, STERILE [Concomitant]
     Dosage: DAILY DOSAGE UNKNOWN
     Route: 041
     Dates: start: 20120703, end: 20120704
  62. WATER, STERILE [Concomitant]
     Dosage: DAILY DOSAGE UNKNOWN
     Route: 041
     Dates: start: 20120705, end: 20120713
  63. WATER, STERILE [Concomitant]
     Dosage: DAILY DOSAGE UNKNOWN
     Route: 041
     Dates: start: 20120715, end: 20120715
  64. WATER, STERILE [Concomitant]
     Dosage: DAILY DOSAGE UNKNOWN
     Route: 041
     Dates: start: 20120717, end: 20120717
  65. WATER, STERILE [Concomitant]
     Dosage: DAILY DOSAGE UNKNOWN
     Route: 041
     Dates: start: 20120719, end: 20120719
  66. WATER, STERILE [Concomitant]
     Dosage: DAILY DOSAGE UNKNOWN
     Route: 041
     Dates: start: 20120725, end: 20120725
  67. WATER, STERILE [Concomitant]
     Dosage: DAILY DOSAGE UNKNOWN
     Route: 041
     Dates: start: 20120727, end: 20120727
  68. WATER, STERILE [Concomitant]
     Dosage: DAILY DOSAGE UNKNOWN
     Route: 041
     Dates: start: 20120730, end: 20120730
  69. WATER, STERILE [Concomitant]
     Dosage: DAILY DOSAGE UNKNOWN
     Route: 041
     Dates: start: 20120801, end: 20120801
  70. WATER, STERILE [Concomitant]
     Dosage: DAILY DOSAGE UNKNOWN
     Route: 041
     Dates: start: 20120803, end: 20120803
  71. WATER, STERILE [Concomitant]
     Dosage: DAILY DOSAGE UNKNOWN
     Route: 041
     Dates: start: 20120805, end: 20120805
  72. WATER, STERILE [Concomitant]
     Dosage: DAILY DOSAGE UNKNOWN
     Route: 041
     Dates: start: 20120807, end: 20120807
  73. WATER, STERILE [Concomitant]
     Dosage: DAILY DOSE UNKNOWN
     Route: 041
     Dates: start: 20120809, end: 20120809
  74. FULCALIQ [Concomitant]
     Dosage: DAILY DOSE UNKNOWN
     Route: 041
     Dates: start: 20120707, end: 20120709
  75. FULCALIQ [Concomitant]
     Dosage: DAILY DOSE UNKNOWN
     Route: 041
     Dates: start: 20120710, end: 20120809
  76. WYSTAL [Concomitant]
     Dosage: DAILY DOSAGE UNKNOWN
     Route: 041
     Dates: start: 20120709, end: 20120720
  77. AMIPAREN [Concomitant]
     Dosage: DAILY DOSAGE UNKNOWN
     Route: 041
     Dates: start: 20120712, end: 20120808
  78. SEFIROM [Concomitant]
     Dosage: DAILY DOSAGE UNKNOWN
     Route: 041
     Dates: start: 20120720, end: 20120809
  79. CALONAL [Concomitant]
     Dosage: DAILY DOSAGE UNKNOWN
     Route: 048
     Dates: start: 20120701, end: 20120704
  80. DOGMATYL [Concomitant]
     Dosage: DAILY DOSE UNKNOWN, TID
     Route: 048
     Dates: start: 20120703, end: 20120723
  81. NAIXAN [Concomitant]
     Dosage: DAILY DOSAGE UNKNOWN
     Route: 048
     Dates: start: 20120704, end: 20120713
  82. NAIXAN [Concomitant]
     Dosage: DAILY DOSAGE UNKNOWN
     Route: 048
     Dates: start: 20120706, end: 20120712
  83. NAIXAN [Concomitant]
     Dosage: DAILY DOSAGE UNKNOWN
     Route: 048
     Dates: start: 20120714, end: 20120803
  84. REFLEX (MIRTAZAPINE) [Concomitant]
     Dosage: AT BED TIME, DAILY DOSAGE UNKNOWN
     Route: 048
     Dates: start: 20120706, end: 20120726
  85. BAKTAR [Concomitant]
     Indication: PROPHYLAXIS
     Dosage: DAILY DOSAGE UNKNOWN
     Route: 048
     Dates: start: 20120711
  86. BAKTAR [Concomitant]
     Dosage: 1 DF, QD
     Route: 048
     Dates: start: 20120724, end: 20120724
  87. BAKTAR [Concomitant]
     Dosage: 0.5 DF, QD
     Route: 048
     Dates: start: 20120725, end: 20120730
  88. ALLELOCK [Concomitant]
     Dosage: DAILY DOSE UNKNOWN
     Route: 048
     Dates: start: 20120711, end: 20120724
  89. PRAVASTATIN SODIUM [Concomitant]
     Indication: HYPERLIPIDAEMIA
     Dosage: QD,DAILY DOSE UNKNOWN
     Route: 048
     Dates: start: 20120711
  90. PRAVASTATIN SODIUM [Concomitant]
     Dosage: 1 DF, QD
     Route: 048
     Dates: start: 20120724, end: 20120730
  91. OMEPRAZOLE [Concomitant]
     Indication: PROPHYLAXIS
     Dosage: DAILY DOSAGE UNKNOWN
     Route: 048
     Dates: start: 20120711
  92. OMEPRAZOLE [Concomitant]
     Dosage: 1 DF, QD
     Route: 048
     Dates: start: 20120724, end: 20120730
  93. CINAL [Concomitant]
     Dosage: DAILY DOSAGE UNKNOWN, TID
     Route: 048
     Dates: start: 20120711, end: 20120724
  94. MYSLEE [Concomitant]
     Indication: INSOMNIA
     Dosage: DAILY DOSAGE UNKNOWN, QD
     Route: 048
     Dates: start: 20120711
  95. MYSLEE [Concomitant]
     Dosage: 3 DF, QD
     Route: 048
     Dates: start: 20120724, end: 20120724
  96. MYSLEE [Concomitant]
     Dosage: 1 DF, QD
     Route: 048
     Dates: start: 20120725, end: 20120730
  97. FOSAMAC TABLETS 35MG [Concomitant]
     Indication: PROPHYLAXIS
     Dosage: DAILY DOSE UNKNOWN
     Route: 048
     Dates: start: 20120711, end: 20120712
  98. FOSAMAC TABLETS 35MG [Concomitant]
     Dosage: 35 MG, QD
     Route: 048
     Dates: start: 20120724, end: 20120724
  99. LINAGLIPTIN [Concomitant]
     Indication: DIABETES MELLITUS
     Dosage: UNK
     Route: 048
     Dates: start: 20120711
  100. LINAGLIPTIN [Concomitant]
     Dosage: 10 MG, QD
     Route: 048
     Dates: start: 20120724, end: 20120724
  101. LINAGLIPTIN [Concomitant]
     Dosage: 5 MG, QD
     Route: 048
     Dates: start: 20120725, end: 20120730
  102. ZOFRAN ZYDIS [Concomitant]
     Dosage: DAILY DOSE UNKNOWN
     Route: 048
     Dates: start: 20120712, end: 20120718
  103. AZUNOL (GUAIAZULENE) [Concomitant]
     Dosage: DAILY DOSAGE UNKNOWN, QD
     Route: 061
     Dates: start: 20120713, end: 20120713
  104. ADALAT [Concomitant]
     Dosage: DAILY DOSE UNKNOWN
     Route: 048
     Dates: start: 20120716, end: 20120716
  105. NIFEDIPINE [Concomitant]
     Indication: HYPERTENSION
     Dosage: DAILY DOSAGE UNKNOWN
     Route: 048
     Dates: start: 20120717, end: 20120717
  106. NIFEDIPINE [Concomitant]
     Dosage: 20 MG, QD
     Route: 048
     Dates: start: 20120718, end: 20120730
  107. FUNGIZONE [Concomitant]
     Dosage: UNK, TID,DAILY DOSAGE UNKNOWN
     Route: 048
     Dates: start: 20120717, end: 20120724
  108. NERISONA [Concomitant]
     Indication: MYCOSIS FUNGOIDES
     Dosage: 1 DF, BID
     Route: 061
     Dates: start: 20120718, end: 20120718
  109. LOXOPROFEN [Concomitant]
     Dosage: AT THE ONSET OF FEVER,DAILY DOSAGE UNKNOWN
     Route: 048
     Dates: start: 20120704, end: 20120704
  110. BIOFERMIN [Concomitant]
     Dosage: TID,DAILY DOSAGE UNKNOWN
     Route: 048
     Dates: start: 20120703, end: 20120716
  111. MORPHINE HYDROCHLORIDE [Concomitant]
     Dosage: 2 DF, THE DIVIDED DOSE FREQUENCY IS UNKNOWN
     Route: 042
     Dates: start: 20120724, end: 20120724
  112. MORPHINE HYDROCHLORIDE [Concomitant]
     Dosage: 2 DF, THE DIVIDED DOSE FREQUENCY IS UNKNOWN
     Route: 042
     Dates: start: 20120726, end: 20120726
  113. MORPHINE HYDROCHLORIDE [Concomitant]
     Dosage: 2 DF, THE DIVIDED DOSE FREQUENCY IS UNKNOWN
     Route: 042
     Dates: start: 20120728, end: 20120728
  114. MORPHINE HYDROCHLORIDE [Concomitant]
     Dosage: 2 DF, THE DIVIDED DOSE FREQUENCY IS UNKNOWN
     Route: 042
     Dates: start: 20120730, end: 20120730
  115. LASIX (FUROSEMIDE) [Concomitant]
     Dosage: 1 DF, UNK
     Route: 041
     Dates: start: 20120725, end: 20120725
  116. INTRALIPOS [Concomitant]
     Dosage: 1 DF, UNK
     Route: 042
     Dates: start: 20120727, end: 20120727
  117. SULPIRIDE [Concomitant]
     Indication: DEPRESSIVE SYMPTOM
     Dosage: 150 MG, TID
     Route: 048
     Dates: start: 20120724, end: 20120730
  118. DOMPERIDONE [Concomitant]
     Indication: VOMITING
     Dosage: 10 MG, QD
     Route: 048
     Dates: start: 20120724, end: 20120730
  119. ZINC OXIDE [Concomitant]
     Indication: MYCOSIS FUNGOIDES
     Dosage: 30 G, QD
     Route: 061
     Dates: start: 20120727, end: 20120727

REACTIONS (4)
  - Mycosis fungoides [Fatal]
  - Platelet count decreased [Recovering/Resolving]
  - Platelet count decreased [Recovering/Resolving]
  - Platelet count decreased [Recovering/Resolving]
